FAERS Safety Report 6995252-8 (Version None)
Quarter: 2010Q3

REPORT INFORMATION
  Report Type: 
  Country: None (occurrence: None)
  Receive Date: 20100915
  Receipt Date: 20100831
  Transmission Date: 20110219
  Serious: Yes (Other)
  Sender: FDA-Public Use
  Company Number: AUR-APL-2010-02210

PATIENT
  Age: 29 Year
  Sex: Female
  Weight: 122.0176 kg

DRUGS (4)
  1. CITALOPRAM HYDROBROMIDE [Suspect]
     Indication: DEPRESSION
     Dates: start: 20100421
  2. LYRICA [Suspect]
     Indication: FIBROMYALGIA
     Dosage: 75MG - BID - ORAL
     Route: 048
     Dates: start: 20100511, end: 20100521
  3. CLOZAZEPAM [Concomitant]
  4. LORAZEPAM [Concomitant]

REACTIONS (3)
  - HOMICIDAL IDEATION [None]
  - OEDEMA PERIPHERAL [None]
  - THINKING ABNORMAL [None]
